FAERS Safety Report 7422934-6 (Version None)
Quarter: 2011Q2

REPORT INFORMATION
  Report Type: 
  Country: None (occurrence: None)
  Receive Date: 20110419
  Receipt Date: 20110408
  Transmission Date: 20111010
  Serious: Yes (Other)
  Sender: FDA-Public Use
  Company Number: US-JNJFOC-20110307185

PATIENT
  Sex: Female

DRUGS (6)
  1. FENTANYL-100 [Suspect]
     Route: 062
  2. DURAGESIC [Suspect]
     Indication: PAIN
     Route: 062
  3. FENTANYL-100 [Suspect]
     Indication: PAIN
     Dosage: FOR ONE MONTH
     Route: 062
  4. FENTANYL-100 [Suspect]
     Route: 062
  5. METHADONE [Suspect]
     Indication: PAIN
     Route: 048
  6. OXYCONTIN [Suspect]
     Indication: PAIN
     Route: 048

REACTIONS (4)
  - WEIGHT INCREASED [None]
  - GENERAL PHYSICAL HEALTH DETERIORATION [None]
  - ORAL SURGERY [None]
  - PAIN [None]
